FAERS Safety Report 23161167 (Version 1)
Quarter: 2023Q4

REPORT INFORMATION
  Report Type: Spontaneous
  Country: US (occurrence: US)
  Receive Date: 20231108
  Receipt Date: 20231108
  Transmission Date: 20240109
  Serious: No
  Sender: FDA-Public Use
  Company Number: US-BRISTOL-MYERS SQUIBB COMPANY-2023-160289

PATIENT
  Age: 61 Year
  Sex: Male
  Weight: 112.94 kg

DRUGS (2)
  1. YERVOY [Suspect]
     Active Substance: IPILIMUMAB
     Indication: Neoplasm malignant
     Dosage: VIAL
     Route: 042
  2. OPDIVO [Concomitant]
     Active Substance: NIVOLUMAB
     Indication: Neoplasm malignant

REACTIONS (1)
  - Off label use [Unknown]
